FAERS Safety Report 9854222 (Version 2)
Quarter: 2014Q1

REPORT INFORMATION
  Report Type: Report from Study
  Country: US (occurrence: US)
  Receive Date: 20140130
  Receipt Date: 20140225
  Transmission Date: 20141002
  Serious: Yes (Hospitalization, Other)
  Sender: FDA-Public Use
  Company Number: US-PFIZER INC-2014017416

PATIENT
  Age: 65 Year
  Sex: Female
  Weight: 68.9 kg

DRUGS (7)
  1. TOFACITINIB CITRATE [Suspect]
     Indication: PSORIASIS
     Dosage: 10 MG, 2X/DAY
     Route: 048
     Dates: start: 20111219, end: 20140117
  2. BACTRIM [Concomitant]
     Indication: URINARY TRACT INFECTION
     Dosage: 800 MG/ 160 MG, BID
     Route: 048
     Dates: start: 20131017, end: 20131020
  3. LOPRESSOR [Concomitant]
     Indication: HYPERTENSION
     Dosage: 400 MG, DAILY
     Route: 048
     Dates: start: 1995
  4. NORVASC [Concomitant]
     Indication: HYPERTENSION
     Dosage: 5 MG, DAILY
     Route: 048
     Dates: start: 201108
  5. ZOCOR [Concomitant]
     Indication: HYPERLIPIDAEMIA
     Dosage: 40 MG, DAILY
     Route: 048
     Dates: start: 1998
  6. POTASSIUM CHLORIDE [Concomitant]
     Indication: HYPOKALAEMIA
     Dosage: 20 MEQ, DAILY
     Route: 048
     Dates: start: 20130701
  7. HYDROCHLOROTHIAZIDE WITH TRIAMTERENE [Concomitant]
     Indication: HYPERTENSION
     Dosage: HYDROCHLOROTHIAZIDE 25MG / TRIAMTERENE 37.5MG, DAILY
     Route: 048
     Dates: start: 1998

REACTIONS (2)
  - Viral infection [Recovered/Resolved]
  - Viral rash [Recovered/Resolved]
